FAERS Safety Report 5177091-6 (Version None)
Quarter: 2006Q4

REPORT INFORMATION
  Report Type: 
  Country: None (occurrence: None)
  Receive Date: 20061207
  Receipt Date: 20061128
  Transmission Date: 20070319
  Serious: Yes (Death, Hospitalization)
  Sender: FDA-Public Use
  Company Number: 2006145948

PATIENT
  Sex: Male

DRUGS (5)
  1. DOXORUBICIN HCL [Suspect]
     Dosage: CYCLICAL, INTRAVENOUS
     Route: 042
     Dates: start: 20050101, end: 20060101
  2. PREDNISONE TAB [Suspect]
     Dosage: 100 MG, CYCLICAL, ORAL
     Route: 048
  3. VINCRISTINE [Suspect]
     Dosage: CYCLICAL, INTRAVENOUS
     Route: 042
     Dates: start: 20050101, end: 20060101
  4. CYCLOPHOSPHAMIDE [Suspect]
     Dosage: CYCLICAL, INTRAVENOUS
     Route: 042
     Dates: start: 20050101, end: 20060101
  5. MABTHERA (RITUXIMAB) [Suspect]
     Dosage: CYCLICAL, INTRAVENOUS
     Route: 042
     Dates: start: 20050101, end: 20060201

REACTIONS (5)
  - ENCEPHALOPATHY [None]
  - HAEMODYNAMIC INSTABILITY [None]
  - HEPATITIS B [None]
  - MULTI-ORGAN FAILURE [None]
  - RENAL FAILURE [None]
